FAERS Safety Report 8570630-4 (Version None)
Quarter: 2012Q3

REPORT INFORMATION
  Report Type: 
  Country: None (occurrence: None)
  Receive Date: 20120804
  Receipt Date: 20120725
  Transmission Date: 20120928
  Serious: No
  Sender: FDA-Public Use
  Company Number: US-ASTRAZENECA-2012SE53661

PATIENT

DRUGS (1)
  1. ZOMIG [Suspect]
     Dosage: 1 AT ONSET OF MIGRAINE AND MAY REPEAT IN 2 HOURS
     Route: 045

REACTIONS (1)
  - PRODUCT QUALITY ISSUE [None]
